FAERS Safety Report 21766603 (Version 2)
Quarter: 2023Q1

REPORT INFORMATION
  Report Type: Spontaneous
  Country: US (occurrence: US)
  Receive Date: 20221222
  Receipt Date: 20230110
  Transmission Date: 20230417
  Serious: Yes (Other)
  Sender: FDA-Public Use
  Company Number: US-TEVA-2022-US-2837369

PATIENT
  Age: 65 Year
  Sex: Male

DRUGS (1)
  1. PROBENECID [Suspect]
     Active Substance: PROBENECID
     Indication: Gout
     Dosage: 2 GRAM DAILY;
     Route: 065

REACTIONS (2)
  - IgA nephropathy [Recovering/Resolving]
  - Chronic kidney disease [Recovering/Resolving]
